FAERS Safety Report 15395991 (Version 1)
Quarter: 2018Q3

REPORT INFORMATION
  Report Type: Spontaneous
  Country: US (occurrence: US)
  Receive Date: 20180912
  Receipt Date: 20180912
  Transmission Date: 20181010
  Serious: No
  Sender: FDA-Public Use
  Company Number: None

PATIENT
  Age: 68 Year
  Sex: Female
  Weight: 92.08 kg

DRUGS (8)
  1. VITAMIN D [Concomitant]
     Active Substance: CHOLECALCIFEROL
  2. METFORMIN [Concomitant]
     Active Substance: METFORMIN HYDROCHLORIDE
  3. LIPITOR [Concomitant]
     Active Substance: ATORVASTATIN CALCIUM
  4. ANASTROZOLE TABS 1MG GENERIC FOR ARIMIDEX TABS [Suspect]
     Active Substance: ANASTROZOLE
     Indication: BREAST CANCER
     Dosage: ?          QUANTITY:1 PILL;?
     Route: 048
     Dates: start: 201311
  5. BENZEPRAIL [Concomitant]
  6. ONE?A?DAY NOS [Concomitant]
     Active Substance: MINERALS\VITAMINS
  7. ATORVASTATIN [Concomitant]
     Active Substance: ATORVASTATIN
  8. TYLENOL [Concomitant]
     Active Substance: ACETAMINOPHEN

REACTIONS (5)
  - Chest pain [None]
  - Rash [None]
  - Hyperhidrosis [None]
  - Arthralgia [None]
  - Headache [None]

NARRATIVE: CASE EVENT DATE: 20180508
